FAERS Safety Report 20068202 (Version 1)
Quarter: 2021Q4

REPORT INFORMATION
  Report Type: Report from Study
  Country: US (occurrence: None)
  Receive Date: 20211115
  Receipt Date: 20211115
  Transmission Date: 20220303
  Serious: Yes (Disabling)
  Sender: FDA-Public Use
  Company Number: US-ROCHE-2731921

PATIENT
  Age: 74 Year
  Sex: Male

DRUGS (20)
  1. RANIBIZUMAB [Suspect]
     Active Substance: RANIBIZUMAB
     Indication: Neovascular age-related macular degeneration
     Dosage: DATE OF MOST RECENT DOSE STUDY EYE RANIBIZUMAB ADMINISTERED PRIOR TO SAE/ AE ONSET 100 MG/ML. 01/DEC
     Route: 050
     Dates: start: 20201201
  2. RANIBIZUMAB [Suspect]
     Active Substance: RANIBIZUMAB
  3. RANIBIZUMAB [Suspect]
     Active Substance: RANIBIZUMAB
  4. RANIBIZUMAB [Suspect]
     Active Substance: RANIBIZUMAB
  5. RANIBIZUMAB [Suspect]
     Active Substance: RANIBIZUMAB
  6. RANIBIZUMAB [Suspect]
     Active Substance: RANIBIZUMAB
  7. LISINOPRIL [Concomitant]
     Active Substance: LISINOPRIL
     Indication: Hypertension
     Dates: start: 201409, end: 20211031
  8. LISINOPRIL [Concomitant]
     Active Substance: LISINOPRIL
     Dates: start: 20191101
  9. CHOLESTYRAMINE [Concomitant]
     Active Substance: CHOLESTYRAMINE
     Indication: Hypercholesterolaemia
     Dates: start: 2000
  10. ROSUVASTATIN [Concomitant]
     Active Substance: ROSUVASTATIN
     Indication: Hypercholesterolaemia
     Dates: start: 20200209
  11. TAMSULOSIN [Concomitant]
     Active Substance: TAMSULOSIN
     Dosage: PROSTATIS PROPHYLAXIS
     Dates: start: 20200812
  12. ASPIRIN [Concomitant]
     Active Substance: ASPIRIN
     Indication: Cardiovascular event prophylaxis
     Dates: start: 20200806, end: 20201124
  13. ASPIRIN [Concomitant]
     Active Substance: ASPIRIN
     Dates: start: 20210101
  14. HERBALS\TURMERIC [Concomitant]
     Active Substance: HERBALS\TURMERIC
     Dates: start: 20201024
  15. CLOPIDOGREL [Concomitant]
     Active Substance: CLOPIDOGREL BISULFATE
     Dates: start: 201409, end: 20201124
  16. CLOPIDOGREL [Concomitant]
     Active Substance: CLOPIDOGREL BISULFATE
     Route: 048
     Dates: start: 20201202
  17. RANIBIZUMAB [Concomitant]
     Active Substance: RANIBIZUMAB
     Dosage: FELLOW EYE TREATMENT?MOST RECENT DOSE OF FELLOW EYE RANIBIZUMAB PRIOR TO ONSET OF SAE: 10 MG/ML
     Route: 050
  18. COENZYME Q10 [Concomitant]
     Active Substance: DIETARY SUPPLEMENT\UBIDECARENONE
     Dates: start: 2017
  19. COVID-19 VACCINE [Concomitant]
     Route: 030
     Dates: start: 20201230, end: 20201230
  20. COVID-19 VACCINE [Concomitant]
     Route: 030
     Dates: start: 20210120, end: 20210120

REACTIONS (1)
  - Vitreous haemorrhage [Recovered/Resolved]

NARRATIVE: CASE EVENT DATE: 20201209
